FAERS Safety Report 24967861 (Version 1)
Quarter: 2025Q1

REPORT INFORMATION
  Report Type: Spontaneous
  Country: CA (occurrence: CA)
  Receive Date: 20250214
  Receipt Date: 20250214
  Transmission Date: 20250409
  Serious: Yes (Hospitalization, Other)
  Sender: CSL BEHRING
  Company Number: CA-BEH-2025194719

PATIENT
  Age: 63 Year
  Sex: Male

DRUGS (3)
  1. HUMAN IMMUNOGLOBULIN G [Suspect]
     Active Substance: HUMAN IMMUNOGLOBULIN G
     Indication: Chronic inflammatory demyelinating polyradiculoneuropathy
     Dosage: 36 G, QW(1 EVERY 1 WEEKS)
     Route: 065
  2. HUMAN IMMUNOGLOBULIN G [Suspect]
     Active Substance: HUMAN IMMUNOGLOBULIN G
     Indication: Off label use
     Dosage: 36 G, BIW(2 EVERY 1 WEEKS)
     Route: 065
  3. HUMAN IMMUNOGLOBULIN G [Suspect]
     Active Substance: HUMAN IMMUNOGLOBULIN G
     Dosage: 36 G, BIW(2 EVERY 1 WEEKS)
     Route: 065

REACTIONS (10)
  - Renal failure [Recovered/Resolved]
  - Fluid retention [Recovered/Resolved]
  - Hypoaesthesia [Recovered/Resolved]
  - Infusion site pain [Recovered/Resolved]
  - Infusion site haemorrhage [Recovered/Resolved]
  - Therapy cessation [Recovered/Resolved]
  - Tremor [Recovered/Resolved]
  - Weight fluctuation [Recovered/Resolved]
  - Off label use [Recovered/Resolved]
  - Product use complaint [Recovered/Resolved]
